FAERS Safety Report 5746725-7 (Version None)
Quarter: 2008Q2

REPORT INFORMATION
  Report Type: 
  Country: None (occurrence: None)
  Receive Date: 20080522
  Receipt Date: 20080513
  Transmission Date: 20081010
  Serious: Yes (Other)
  Sender: FDA-Public Use
  Company Number: ES-ELI_LILLY_AND_COMPANY-ES200805002607

PATIENT
  Age: 74 Year
  Sex: Male

DRUGS (8)
  1. HUMULINA NPH [Suspect]
     Indication: DIABETES MELLITUS
     Dosage: 100 UL/ML, SUSPENSION VIALS 10ML
     Route: 058
  2. DIANBEN [Concomitant]
     Dosage: 850 MG, UNKNOWN
     Route: 048
  3. ADIRO [Concomitant]
     Dosage: 100 MG, UNKNOWN
     Route: 048
  4. AXURA [Concomitant]
     Dosage: 100 MG, UNKNOWN
     Route: 048
     Dates: start: 20071201, end: 20080219
  5. CARDYL [Concomitant]
     Dosage: 40 MG, UNKNOWN
     Route: 048
  6. NEURONTIN [Concomitant]
     Dosage: 400 MG, UNKNOWN
     Route: 048
  7. EXELON [Concomitant]
     Indication: AMNESIA
     Dosage: 2 MG/ML
     Route: 048
     Dates: start: 19961201
  8. PANTOPRAZOLE SODIUM [Concomitant]
     Dosage: 20 MG, UNKNOWN
     Route: 048

REACTIONS (5)
  - AMNESIA [None]
  - DISORIENTATION [None]
  - DIZZINESS [None]
  - INSOMNIA [None]
  - SYNCOPE [None]
